FAERS Safety Report 7903590-7 (Version None)
Quarter: 2011Q4

REPORT INFORMATION
  Report Type: 
  Country: None (occurrence: None)
  Receive Date: 20111109
  Receipt Date: 20111109
  Transmission Date: 20120403
  Serious: Yes (Other)
  Sender: FDA-Public Use
  Company Number: None

PATIENT
  Age: 29 Year
  Sex: Female
  Weight: 65.77 kg

DRUGS (1)
  1. LORYNA [Suspect]
     Indication: CONTRACEPTION
     Dosage: 1 TABLET
     Route: 048
     Dates: start: 20110815, end: 20110910

REACTIONS (10)
  - MENSTRUATION IRREGULAR [None]
  - PRODUCT SUBSTITUTION ISSUE [None]
  - BREAST PAIN [None]
  - SECRETION DISCHARGE [None]
  - BREAST TENDERNESS [None]
  - BREAST SWELLING [None]
  - DEPRESSION [None]
  - HAEMORRHAGE [None]
  - HEADACHE [None]
  - WEIGHT INCREASED [None]
